FAERS Safety Report 23679516 (Version 3)
Quarter: 2024Q2

REPORT INFORMATION
  Report Type: Spontaneous
  Country: JP (occurrence: JP)
  Receive Date: 20240327
  Receipt Date: 20240409
  Transmission Date: 20240716
  Serious: Yes (Other)
  Sender: FDA-Public Use
  Company Number: JP-MSD-2101JPN002032J

PATIENT
  Age: 67 Year
  Sex: Female

DRUGS (1)
  1. KEYTRUDA [Suspect]
     Active Substance: PEMBROLIZUMAB
     Indication: Renal cell carcinoma
     Dosage: 200 MILLIGRAM, Q3W
     Route: 041
     Dates: start: 201804

REACTIONS (4)
  - Tumour pseudoprogression [Recovered/Resolved]
  - Paronychia [Recovered/Resolved]
  - Immune-mediated dermatitis [Recovered/Resolved]
  - Off label use [Unknown]
